FAERS Safety Report 4709113-8 (Version None)
Quarter: 2005Q3

REPORT INFORMATION
  Report Type: 
  Country: None (occurrence: None)
  Receive Date: 20050708
  Receipt Date: 20050629
  Transmission Date: 20060218
  Serious: Yes (Life-Threatening, Hospitalization)
  Sender: FDA-Public Use
  Company Number: US-ABBOTT-05P-163-0304622-00

PATIENT
  Sex: Female

DRUGS (6)
  1. ERYTHROMYCIN [Suspect]
     Indication: DRUG USE FOR UNKNOWN INDICATION
     Dates: start: 20040101, end: 20050608
  2. AMITRIPTYLINE HCL [Concomitant]
     Indication: DEPRESSION
     Route: 048
     Dates: start: 20040101
  3. SIMVASTATIN [Concomitant]
     Indication: DRUG USE FOR UNKNOWN INDICATION
  4. ALENDRONATE SODIUM [Concomitant]
     Indication: DRUG USE FOR UNKNOWN INDICATION
  5. SERETIDE MITE [Concomitant]
     Indication: DRUG USE FOR UNKNOWN INDICATION
  6. PAROXETINE HYDROCHLORIDE [Concomitant]
     Indication: DEPRESSION

REACTIONS (2)
  - LIVER DISORDER [None]
  - MALAISE [None]
